FAERS Safety Report 9849438 (Version 1)
Quarter: 2014Q1

REPORT INFORMATION
  Report Type: Spontaneous
  Country: US (occurrence: US)
  Receive Date: 20140128
  Receipt Date: 20140128
  Transmission Date: 20141002
  Serious: Yes (Hospitalization)
  Sender: FDA-Public Use
  Company Number: US-B.I. PHARMACEUTICALS,INC./RIDGEFIELD-2014-BI-03271BP

PATIENT
  Sex: Female
  Weight: 71 kg

DRUGS (5)
  1. COMBIVENT [Suspect]
     Indication: CHRONIC OBSTRUCTIVE PULMONARY DISEASE
     Dosage: STRENGTH: 18 MCG / 103 MCG; DAILY DOSE: 144MCG/824MCG
     Route: 055
     Dates: start: 1999, end: 201308
  2. LEVOXYL [Concomitant]
     Indication: HYPOTHYROIDISM
     Dosage: 100 MCG
     Route: 048
     Dates: start: 2008
  3. ORPHENDRINE [Concomitant]
  4. METOPROLOL [Concomitant]
     Indication: CHEST PAIN
     Dosage: 75 MG
     Route: 048
     Dates: start: 1999
  5. ATIVAN [Concomitant]
     Indication: ANXIETY
     Dosage: 1.5 MG
     Route: 048

REACTIONS (6)
  - Foot fracture [Not Recovered/Not Resolved]
  - Local swelling [Recovered/Resolved]
  - Osteomyelitis [Recovered/Resolved]
  - Fall [Recovered/Resolved]
  - Weight decreased [Recovered/Resolved]
  - Dyspnoea [Recovered/Resolved]
